FAERS Safety Report 23480064 (Version 1)
Quarter: 2024Q1

REPORT INFORMATION
  Report Type: Report from Study
  Country: US (occurrence: US)
  Receive Date: 20240205
  Receipt Date: 20240205
  Transmission Date: 20240410
  Serious: Yes (Other)
  Sender: FDA-Public Use
  Company Number: US-ORG100014127-2023001083

PATIENT
  Age: 78 Year
  Sex: Male

DRUGS (11)
  1. LYSODREN [Suspect]
     Active Substance: MITOTANE
     Indication: Adrenocortical carcinoma
     Dosage: 3500MG DAILY
     Route: 048
     Dates: start: 20221220
  2. AMLODIPINE [Concomitant]
     Active Substance: AMLODIPINE BESYLATE
     Indication: Product used for unknown indication
  3. Atorvastatin 20mg tablet [Concomitant]
     Indication: Product used for unknown indication
  4. Fludrocortisone 0.1mg tablets [Concomitant]
     Indication: Product used for unknown indication
  5. hydrocortisone 10mg tablets [Concomitant]
     Indication: Product used for unknown indication
  6. LEVOTHYROXINE [Concomitant]
     Active Substance: LEVOTHYROXINE\LEVOTHYROXINE SODIUM
     Indication: Product used for unknown indication
  7. METOPROLOL TARTRATE [Concomitant]
     Active Substance: METOPROLOL TARTRATE
     Indication: Product used for unknown indication
  8. Pantoprazole 40mg tablet [Concomitant]
     Indication: Product used for unknown indication
  9. Iron complex 150mg capsules [Concomitant]
     Indication: Product used for unknown indication
  10. Magnesium tablets SR 84mg [Concomitant]
     Indication: Product used for unknown indication
  11. XARELTO [Concomitant]
     Active Substance: RIVAROXABAN
     Indication: Product used for unknown indication

REACTIONS (9)
  - Neurotoxicity [Not Recovered/Not Resolved]
  - Mental impairment [Not Recovered/Not Resolved]
  - Tremor [Not Recovered/Not Resolved]
  - Dyspnoea [Not Recovered/Not Resolved]
  - Gait disturbance [Not Recovered/Not Resolved]
  - Iron deficiency anaemia [Not Recovered/Not Resolved]
  - Ataxia [Not Recovered/Not Resolved]
  - Fatigue [Not Recovered/Not Resolved]
  - Asthenia [Not Recovered/Not Resolved]

NARRATIVE: CASE EVENT DATE: 20230901
